FAERS Safety Report 9832004 (Version 1)
Quarter: 2014Q1

REPORT INFORMATION
  Report Type: Report from Study
  Country: DE (occurrence: DE)
  Receive Date: 20140121
  Receipt Date: 20140121
  Transmission Date: 20141002
  Serious: Yes (Other)
  Sender: FDA-Public Use
  Company Number: DE-ROCHE-1335101

PATIENT
  Age: 65 Year
  Sex: 0

DRUGS (1)
  1. RITUXIMAB [Suspect]
     Indication: CHRONIC LYMPHOCYTIC LEUKAEMIA
     Dosage: 42.5 MG IN 50 ML OVER 6.5 HOURS
     Route: 042

REACTIONS (4)
  - Multi-organ failure [Unknown]
  - Renal failure [Unknown]
  - Blood potassium increased [Unknown]
  - Cardiac arrest [Unknown]
